FAERS Safety Report 8545998-5 (Version None)
Quarter: 2012Q3

REPORT INFORMATION
  Report Type: 
  Country: None (occurrence: None)
  Receive Date: 20120727
  Receipt Date: 20120131
  Transmission Date: 20120928
  Serious: No
  Sender: FDA-Public Use
  Company Number: US-ASTRAZENECA-2011SE72692

PATIENT
  Age: 69 Year
  Sex: Female
  Weight: 63.5 kg

DRUGS (13)
  1. SEROQUEL XR [Suspect]
     Route: 048
  2. POTASSIUM CHLORIDE [Concomitant]
  3. XOPENEX [Concomitant]
     Indication: DYSPNOEA
  4. LISINOPRIL [Concomitant]
     Indication: MITRAL VALVE PROLAPSE
  5. SINGULAIR [Concomitant]
     Dosage: AT NIGHT
  6. VITAMIN D [Concomitant]
  7. CALCIUM [Concomitant]
  8. SEROQUEL XR [Suspect]
     Indication: RESTLESSNESS
     Route: 048
  9. CARVEDILOL [Concomitant]
     Indication: MITRAL VALVE PROLAPSE
  10. SEROQUEL XR [Suspect]
     Route: 048
  11. CRESTOR [Concomitant]
     Indication: BLOOD CHOLESTEROL ABNORMAL
     Route: 048
  12. ERGOCALCIFEROL [Concomitant]
     Dosage: 50000
  13. IRON [Concomitant]

REACTIONS (7)
  - BLOOD CHOLESTEROL ABNORMAL [None]
  - WRONG TECHNIQUE IN DRUG USAGE PROCESS [None]
  - PARATHYROID DISORDER [None]
  - THERAPEUTIC RESPONSE UNEXPECTED [None]
  - INCORRECT DOSE ADMINISTERED [None]
  - ASTHMA [None]
  - DRUG PRESCRIBING ERROR [None]
